FAERS Safety Report 8004722-5 (Version None)
Quarter: 2011Q4

REPORT INFORMATION
  Report Type: 
  Country: None (occurrence: None)
  Receive Date: 20111219
  Receipt Date: 20111207
  Transmission Date: 20120403
  Serious: Yes (Life-Threatening)
  Sender: FDA-Public Use
  Company Number: TCI2011A06358

PATIENT
  Age: 78 Year
  Sex: Female

DRUGS (9)
  1. BLOPRESS (CANDESARTAN CILEXETIL) [Concomitant]
  2. BASEN TABLETS 0.2 (VOGLIBOSE) [Concomitant]
  3. ACTOS [Suspect]
     Indication: DIABETES MELLITUS
     Dosage: 15 MG (15 MG, 1 IN 1 D) PER ORAL
     Route: 048
     Dates: start: 20050314, end: 20100105
  4. NORVASC [Concomitant]
  5. SUNRYTHM (PILSICAINIDE HYDROCHLORIDE) [Concomitant]
  6. FAMOTIDINE [Concomitant]
  7. ONEALFA (ALFACALCIDOL) [Concomitant]
  8. LENDORMIN D (BROTIZOLAM) [Concomitant]
  9. DOXAZOSIN MESYLATE [Concomitant]

REACTIONS (4)
  - TRANSITIONAL CELL CARCINOMA [None]
  - HYDRONEPHROSIS [None]
  - TRANSITIONAL CELL CANCER OF THE RENAL PELVIS AND URETER [None]
  - HAEMATURIA [None]
